FAERS Safety Report 6524790-7 (Version None)
Quarter: 2010Q1

REPORT INFORMATION
  Report Type: 
  Country: None (occurrence: None)
  Receive Date: 20100104
  Receipt Date: 20091223
  Transmission Date: 20100710
  Serious: Yes (Other)
  Sender: FDA-Public Use
  Company Number: TR-ELI_LILLY_AND_COMPANY-TR200912005422

PATIENT
  Sex: Female

DRUGS (2)
  1. HUMULIN N [Suspect]
     Indication: DIABETES MELLITUS
     Dosage: 10 IU, 3/D
     Route: 058
     Dates: start: 20091001
  2. HUMULIN R [Suspect]
     Indication: DIABETES MELLITUS
     Dosage: 10 U, DAILY (1/D)
     Route: 058
     Dates: start: 20091001

REACTIONS (10)
  - ANAL FISSURE [None]
  - ANAL FISTULA [None]
  - ERYTHEMA [None]
  - INFECTION [None]
  - INGROWING NAIL [None]
  - LARGE INTESTINAL ULCER [None]
  - RECTAL HAEMORRHAGE [None]
  - SKIN EXFOLIATION [None]
  - VULVOVAGINAL MYCOTIC INFECTION [None]
  - WOUND [None]
